FAERS Safety Report 8996318 (Version 1)
Quarter: 2013Q1

REPORT INFORMATION
  Report Type: Spontaneous
  Country: US (occurrence: US)
  Receive Date: 20130103
  Receipt Date: 20130103
  Transmission Date: 20140127
  Serious: Yes (Hospitalization)
  Sender: FDA-Public Use
  Company Number: US-MYLANLABS-2012S1026367

PATIENT
  Age: 31 Year
  Sex: Female
  Weight: 95.26 kg

DRUGS (5)
  1. DICYCLOMINE HYDROCHLORIDE CAPSULE, USP [Suspect]
     Indication: IRRITABLE BOWEL SYNDROME
     Route: 048
     Dates: start: 201201
  2. PREVACID [Concomitant]
     Indication: IRRITABLE BOWEL SYNDROME
  3. KLONOPIN [Concomitant]
     Indication: TOURETTE^S DISORDER
  4. SEROQUEL [Concomitant]
  5. ZOFRAN [Concomitant]
     Indication: NAUSEA
     Route: 048

REACTIONS (6)
  - Dyspnoea [Not Recovered/Not Resolved]
  - Muscular weakness [Not Recovered/Not Resolved]
  - Myasthenia gravis [Not Recovered/Not Resolved]
  - Dysphagia [Not Recovered/Not Resolved]
  - Diplopia [Not Recovered/Not Resolved]
  - Weight decreased [Not Recovered/Not Resolved]
